FAERS Safety Report 6724605-8 (Version None)
Quarter: 2010Q2

REPORT INFORMATION
  Report Type: 
  Country: None (occurrence: None)
  Receive Date: 20100513
  Receipt Date: 20100504
  Transmission Date: 20101027
  Serious: Yes (Disabling, Other)
  Sender: FDA-Public Use
  Company Number: AU-PFIZER INC-2009233051

PATIENT
  Age: 62 Year
  Sex: Female
  Weight: 61 kg

DRUGS (6)
  1. CHAMPIX [Suspect]
     Indication: SMOKING CESSATION THERAPY
     Dosage: 1 MG, 2X/DAY
     Route: 048
     Dates: start: 20090203, end: 20090616
  2. COENZYME Q10 [Concomitant]
  3. HYDROCHLOROTHIAZIDE [Concomitant]
  4. KARVEZIDE [Concomitant]
     Indication: HYPERTENSION
     Dosage: MANE
     Route: 048
     Dates: start: 20070821
  5. ZOCOR [Concomitant]
     Indication: BLOOD CHOLESTEROL
     Dosage: NOCTE
     Route: 048
     Dates: start: 20021216
  6. FISH OIL [Concomitant]

REACTIONS (11)
  - ANXIETY [None]
  - DEPRESSED MOOD [None]
  - DISSOCIATION [None]
  - DISTURBANCE IN ATTENTION [None]
  - DYSGEUSIA [None]
  - FEELING ABNORMAL [None]
  - HYPERTENSION [None]
  - INSOMNIA [None]
  - LETHARGY [None]
  - VERTIGO [None]
  - WEIGHT INCREASED [None]
